FAERS Safety Report 9154415 (Version 1)
Quarter: 2013Q1

REPORT INFORMATION
  Report Type: Spontaneous
  Country: US (occurrence: US)
  Receive Date: 20130311
  Receipt Date: 20130311
  Transmission Date: 20140127
  Serious: No
  Sender: FDA-Public Use
  Company Number: US-ABBOTT-12P-163-0997958-00

PATIENT
  Sex: Female
  Weight: 70.37 kg

DRUGS (2)
  1. LUPRON DEPOT [Suspect]
     Indication: ENDOMETRIOSIS
     Dosage: ONE INJECTION FOR 3 MONTHS
     Dates: start: 20111011
  2. HORMONE MEDICATION [Concomitant]
     Indication: HORMONE THERAPY
     Dates: start: 201110

REACTIONS (3)
  - Anxiety [Not Recovered/Not Resolved]
  - Hypothyroidism [Not Recovered/Not Resolved]
  - Vitamin D deficiency [Not Recovered/Not Resolved]
